FAERS Safety Report 24408230 (Version 1)
Quarter: 2024Q4

REPORT INFORMATION
  Report Type: Spontaneous
  Country: US (occurrence: None)
  Receive Date: 20241007
  Receipt Date: 20241007
  Transmission Date: 20250115
  Serious: Yes (Life-Threatening)
  Sender: Public
  Company Number: None

PATIENT
  Age: 54 Year
  Sex: Female
  Weight: 98.5 kg

DRUGS (1)
  1. ALTEPLASE [Suspect]
     Active Substance: ALTEPLASE
     Dates: start: 20241004, end: 20241004

REACTIONS (4)
  - Hypotension [None]
  - Hypokinesia [None]
  - Obstructive airways disorder [None]
  - Ejection fraction decreased [None]

NARRATIVE: CASE EVENT DATE: 20241004
